FAERS Safety Report 7963861-5 (Version None)
Quarter: 2011Q4

REPORT INFORMATION
  Report Type: 
  Country: None (occurrence: None)
  Receive Date: 20111208
  Receipt Date: 20111129
  Transmission Date: 20120403
  Serious: Yes (Life-Threatening, Hospitalization, Other)
  Sender: FDA-Public Use
  Company Number: US-BAYER-2011-022045

PATIENT
  Age: 37 Year
  Sex: Female
  Weight: 63 kg

DRUGS (13)
  1. ATENOLOL [Concomitant]
  2. ADDERALL 5 [Concomitant]
     Indication: ATTENTION DEFICIT/HYPERACTIVITY DISORDER
  3. TRAZODONE HCL [Concomitant]
     Indication: SLEEP DISORDER
     Dosage: UNK
     Dates: start: 20050101
  4. YAZ [Suspect]
     Indication: CONTRACEPTION
     Dosage: UNK
     Route: 048
     Dates: start: 20060101, end: 20100101
  5. YASMIN [Suspect]
     Indication: MENSTRUATION IRREGULAR
  6. DROSPIRENONE AND ETHINYL ESTRADIOL [Suspect]
     Indication: CONTRACEPTION
     Dosage: UNK
     Route: 048
     Dates: start: 20090401, end: 20100201
  7. YASMIN [Suspect]
     Indication: CONTRACEPTION
     Dosage: UNK
     Route: 048
     Dates: start: 20060101, end: 20100101
  8. DROSPIRENONE AND ETHINYL ESTRADIOL [Suspect]
     Indication: MENSTRUATION IRREGULAR
  9. TRIAMTERENE AND HYDROCHLOROTHIAZIDE [Concomitant]
     Indication: OEDEMA PERIPHERAL
     Dosage: UNK
     Dates: start: 20050101
  10. NEXIUM [Concomitant]
  11. YAZ [Suspect]
     Indication: MENSTRUATION IRREGULAR
  12. DETROL [Concomitant]
  13. FEMCON FE [Concomitant]
     Dosage: UNK UNK, HS

REACTIONS (3)
  - GALLBLADDER DISORDER [None]
  - BILIARY DYSKINESIA [None]
  - PAIN [None]
